FAERS Safety Report 7550335-9 (Version None)
Quarter: 2011Q2

REPORT INFORMATION
  Report Type: 
  Country: None (occurrence: None)
  Receive Date: 20110615
  Receipt Date: 20110531
  Transmission Date: 20111010
  Serious: No
  Sender: FDA-Public Use
  Company Number: US-B.I. PHARMACEUTICALS,INC./RIDGEFIELD-2011-BP-04403BP

PATIENT
  Sex: Male
  Weight: 89.36 kg

DRUGS (12)
  1. FISH OIL [Concomitant]
     Dosage: 2400 MG
     Dates: start: 20070101
  2. TAMSULOSIN HCL [Concomitant]
     Dosage: 0.4 MG
     Dates: start: 20040101
  3. RANITIDINE [Concomitant]
     Dosage: 150 MG
  4. BUMETANIDE [Concomitant]
     Dosage: 4 MG
     Dates: start: 20070101
  5. PRADAXA [Suspect]
     Indication: ATRIAL FIBRILLATION
     Dosage: 300 MG
     Dates: start: 20110122
  6. SPIRONOLACTONE [Concomitant]
     Dosage: 50 MG
  7. ASPIRIN [Concomitant]
     Dosage: 81 MG
  8. VITEYES [Concomitant]
  9. CARVEDILOL [Concomitant]
     Dosage: 6.25 MG
     Dates: start: 20070101
  10. ALLOPURINOL [Concomitant]
     Dosage: 300 MG
     Dates: start: 20080101
  11. NITROGLYCERIN SR [Concomitant]
     Dosage: 5 MG
     Dates: start: 20070101
  12. CO Q10 [Concomitant]
     Dates: start: 20090101

REACTIONS (2)
  - CONTUSION [None]
  - INTENTIONAL DRUG MISUSE [None]
